FAERS Safety Report 6059963-3 (Version None)
Quarter: 2009Q1

REPORT INFORMATION
  Report Type: 
  Country: None (occurrence: None)
  Receive Date: 20090130
  Receipt Date: 20090121
  Transmission Date: 20090719
  Serious: Yes (Other)
  Sender: FDA-Public Use
  Company Number: AU-B.I. PHARMACEUTICALS,INC./RIDGEFIELD-2009-BP-01126AU

PATIENT

DRUGS (1)
  1. MICARDIS HCT [Suspect]

REACTIONS (3)
  - CONVULSION [None]
  - DRUG INTOLERANCE [None]
  - HYPONATRAEMIA [None]
